FAERS Safety Report 23966950 (Version 1)
Quarter: 2024Q2

REPORT INFORMATION
  Report Type: Spontaneous
  Country: US (occurrence: US)
  Receive Date: 20240612
  Receipt Date: 20240612
  Transmission Date: 20240716
  Serious: No
  Sender: FDA-Public Use
  Company Number: US-BIOGEN-2018BI00671447

PATIENT
  Age: 60 Year
  Sex: Female

DRUGS (4)
  1. TYSABRI [Suspect]
     Active Substance: NATALIZUMAB
     Indication: Multiple sclerosis
     Dosage: INFUSED OVER 1 HOUR
     Route: 050
     Dates: start: 20160328, end: 201804
  2. TYSABRI [Suspect]
     Active Substance: NATALIZUMAB
     Dosage: 1 FOR 6-8 WEEK?INFUSED OVER 1 HOUR
     Route: 050
     Dates: start: 201804, end: 201807
  3. TYSABRI [Suspect]
     Active Substance: NATALIZUMAB
     Dosage: INFUSED OVER 1 HOUR
     Route: 050
     Dates: start: 201807
  4. TYSABRI [Suspect]
     Active Substance: NATALIZUMAB
     Dosage: OFF-LABEL INFUSION SCHEDULE OF ONE INFUSION EVERY 8-9 WEEKS
     Route: 050

REACTIONS (2)
  - Prescribed underdose [Not Recovered/Not Resolved]
  - Cognitive disorder [Unknown]

NARRATIVE: CASE EVENT DATE: 20180201
